FAERS Safety Report 25410390 (Version 2)
Quarter: 2025Q3

REPORT INFORMATION
  Report Type: Spontaneous
  Country: US (occurrence: US)
  Receive Date: 20250608
  Receipt Date: 20250701
  Transmission Date: 20251021
  Serious: Yes (Hospitalization, Other)
  Sender: SANOFI AVENTIS
  Company Number: US-SA-2025SA161460

PATIENT
  Sex: Male
  Weight: 14.55 kg

DRUGS (1)
  1. DUPIXENT [Suspect]
     Active Substance: DUPILUMAB
     Dosage: 200 MG, Q4W
     Route: 058

REACTIONS (6)
  - Syncope [Unknown]
  - Hospitalisation [Unknown]
  - Fall [Unknown]
  - Eye pain [Unknown]
  - Rebound eczema [Unknown]
  - Rash [Unknown]
